FAERS Safety Report 10019734 (Version 3)
Quarter: 2014Q2

REPORT INFORMATION
  Report Type: Spontaneous
  Country: US (occurrence: US)
  Receive Date: 20140318
  Receipt Date: 20140618
  Transmission Date: 20141212
  Serious: No
  Sender: FDA-Public Use
  Company Number: US-GALDERMA-US14000166

PATIENT
  Age: 72 Year
  Sex: Female

DRUGS (9)
  1. MIRVASO (BRIMONIDINE) TOPICAL GEL, 0.33% [Suspect]
     Indication: ROSACEA
     Dosage: 0.33%
     Route: 061
     Dates: start: 20140107, end: 20140109
  2. HYDROCHLOROTHIAZIDE [Concomitant]
     Route: 048
     Dates: start: 2009
  3. CENTRUM SILVER [Concomitant]
     Route: 048
     Dates: start: 2005
  4. CLINIQUE REDNESS SOLUTION [Concomitant]
     Route: 061
     Dates: start: 2012
  5. NEUTROGENA HEALTHY SKIN LIQUID MAKEUP [Concomitant]
     Route: 061
     Dates: start: 2012
  6. CETAPHIL CLEANSER [Concomitant]
     Route: 061
     Dates: start: 2012
  7. CETAPHIL MOISTURIZING LOTION [Concomitant]
     Route: 061
     Dates: start: 2012
  8. DOXYCYCLINE [Concomitant]
     Dosage: 100 MG
     Route: 048
     Dates: start: 20130404
  9. DOVONEX [Concomitant]
     Dates: start: 20121113

REACTIONS (4)
  - Swelling face [Recovered/Resolved]
  - Chemical burn of skin [Recovered/Resolved]
  - Skin exfoliation [Recovered/Resolved]
  - Erythema [Unknown]
